FAERS Safety Report 8246285-5 (Version None)
Quarter: 2012Q1

REPORT INFORMATION
  Report Type: 
  Country: None (occurrence: None)
  Receive Date: 20120330
  Receipt Date: 20120322
  Transmission Date: 20120608
  Serious: Yes (Hospitalization, Other)
  Sender: FDA-Public Use
  Company Number: US-GENZYME-THYM-1003070

PATIENT
  Sex: Male
  Weight: 135 kg

DRUGS (6)
  1. METOPROLOL SUCCINATE [Concomitant]
     Indication: HYPERTENSION
     Dosage: UNK
     Route: 065
  2. PREDNISONE TAB [Concomitant]
     Indication: GRAFT VERSUS HOST DISEASE
     Dosage: UNK
     Route: 065
  3. VORICONAZOLE [Concomitant]
     Indication: PRODUCT USED FOR UNKNOWN INDICATION
     Dosage: UNK
     Route: 065
  4. THYMOGLOBULIN [Suspect]
     Indication: CHRONIC LYMPHOCYTIC LEUKAEMIA
     Dosage: 1.7 MG/KG, QD
     Route: 042
     Dates: start: 20111114, end: 20111116
  5. TACROLIMUS [Concomitant]
     Indication: GRAFT VERSUS HOST DISEASE
     Dosage: UNK
     Route: 065
  6. VALACICLOVIR [Concomitant]
     Indication: PRODUCT USED FOR UNKNOWN INDICATION
     Dosage: UNK
     Route: 065

REACTIONS (5)
  - VOMITING [None]
  - CYSTITIS HAEMORRHAGIC [None]
  - NAUSEA [None]
  - ABDOMINAL PAIN [None]
  - DIARRHOEA [None]
